FAERS Safety Report 8616425-4 (Version None)
Quarter: 2012Q3

REPORT INFORMATION
  Report Type: 
  Country: None (occurrence: None)
  Receive Date: 20120823
  Receipt Date: 20120816
  Transmission Date: 20120928
  Serious: Yes (Hospitalization)
  Sender: FDA-Public Use
  Company Number: PHHY2012JP071758

PATIENT
  Age: 80 Year
  Sex: Female

DRUGS (2)
  1. ACETYLSALICYLIC ACID SRT [Suspect]
     Indication: ANTIPLATELET THERAPY
     Dosage: 200 MG, UNK
     Route: 048
  2. TICLOPIDINE HCL [Suspect]
     Dosage: 200 MG, UNK
     Route: 048

REACTIONS (1)
  - SUBCUTANEOUS HAEMATOMA [None]
